FAERS Safety Report 4602046-7 (Version None)
Quarter: 2005Q1

REPORT INFORMATION
  Report Type: 
  Country: None (occurrence: None)
  Receive Date: 20050308
  Receipt Date: 20050228
  Transmission Date: 20050727
  Serious: Yes (Death)
  Sender: FDA-Public Use
  Company Number: MY-MERCK-0503MYS00002

PATIENT
  Age: 19 Year
  Sex: Female

DRUGS (1)
  1. BLOCADREN [Suspect]
     Indication: HYPERTHYROIDISM
     Route: 048

REACTIONS (1)
  - ANAPHYLACTOID REACTION [None]
